FAERS Safety Report 5486424-2 (Version None)
Quarter: 2007Q3

REPORT INFORMATION
  Report Type: 
  Country: None (occurrence: None)
  Receive Date: 20070918
  Receipt Date: 20070731
  Transmission Date: 20080115
  Serious: Yes (Hospitalization)
  Sender: FDA-Public Use
  Company Number: 13827035

PATIENT
  Sex: Female

DRUGS (4)
  1. EMSAM [Suspect]
     Indication: AFFECTIVE DISORDER
     Dosage: 12 MILLIGRAM, 1/1 DAY TD
     Route: 062
     Dates: start: 20070619, end: 20070101
  2. DEPAKOTE [Concomitant]
  3. XANAX [Suspect]
  4. LAMICTAL [Concomitant]

REACTIONS (1)
  - RECTAL HAEMORRHAGE [None]
